FAERS Safety Report 8023684-8 (Version None)
Quarter: 2012Q1

REPORT INFORMATION
  Report Type: 
  Country: None (occurrence: None)
  Receive Date: 20120105
  Receipt Date: 20111227
  Transmission Date: 20120608
  Serious: Yes (Hospitalization, Other)
  Sender: FDA-Public Use
  Company Number: US-BAYER-2011-063280

PATIENT
  Age: 19 Year
  Sex: Female
  Weight: 90.703 kg

DRUGS (10)
  1. DROSPIRENONE AND ETHINYL ESTRADIOL [Suspect]
     Dosage: UNK
     Dates: start: 20081101, end: 20090701
  2. PRILOSEC [Concomitant]
  3. YASMIN [Suspect]
     Dosage: UNK
     Dates: start: 20081101, end: 20090701
  4. SEASONALE [Concomitant]
  5. LORTAB [Concomitant]
  6. METFORMIN HCL [Concomitant]
     Indication: POLYCYSTIC OVARIES
     Dosage: 500 MG, BID
     Route: 048
  7. DARVOCET [Concomitant]
     Indication: PAIN
     Dosage: 1-2 TABLETS EVERY 4-6 HOURS
  8. MOTRIN [Concomitant]
  9. PHENERGAN [Concomitant]
  10. SEASONIQUE [Concomitant]
     Dosage: ONE TABLET DAILY
     Route: 048

REACTIONS (8)
  - PAIN [None]
  - SCAR [None]
  - GALLBLADDER INJURY [None]
  - ANXIETY [None]
  - CHOLECYSTITIS CHRONIC [None]
  - DEEP VEIN THROMBOSIS [None]
  - INJURY [None]
  - EMOTIONAL DISTRESS [None]
